FAERS Safety Report 23651773 (Version 1)
Quarter: 2024Q1

REPORT INFORMATION
  Report Type: Spontaneous
  Country: US (occurrence: US)
  Receive Date: 20240320
  Receipt Date: 20240320
  Transmission Date: 20240410
  Serious: Yes (Hospitalization, Other)
  Sender: FDA-Public Use
  Company Number: US-SUN PHARMACEUTICAL INDUSTRIES LTD-2024R1-436854

PATIENT
  Age: 78 Year
  Sex: Male

DRUGS (2)
  1. CEFTRIAXONE [Suspect]
     Active Substance: CEFTRIAXONE\CEFTRIAXONE SODIUM
     Indication: Polycythaemia vera
     Route: 042
  2. AZITHROMYCIN [Suspect]
     Active Substance: AZITHROMYCIN
     Indication: Polycythaemia vera
     Dosage: UNK
     Route: 042

REACTIONS (4)
  - Drug ineffective [Unknown]
  - White blood cell count increased [Unknown]
  - Condition aggravated [Unknown]
  - Acute myeloid leukaemia [Unknown]
